FAERS Safety Report 6456332-9 (Version None)
Quarter: 2009Q4

REPORT INFORMATION
  Report Type: 
  Country: None (occurrence: None)
  Receive Date: 20091125
  Receipt Date: 20091110
  Transmission Date: 20100525
  Serious: Yes (Other)
  Sender: FDA-Public Use
  Company Number: US-SANOFI-AVENTIS-2009SA002769

PATIENT
  Sex: Male

DRUGS (19)
  1. MULTAQ [Suspect]
     Route: 048
     Dates: start: 20090901
  2. PREDNISONE [Concomitant]
  3. PRILOSEC [Concomitant]
     Route: 048
  4. ASPIRIN [Concomitant]
     Route: 048
  5. RAMIPRIL [Concomitant]
     Route: 048
  6. NIASPAN [Concomitant]
     Route: 048
  7. METOPROLOL TARTRATE [Concomitant]
     Route: 048
  8. BUMETANIDE [Concomitant]
     Dosage: 1-2 DEPENDING
     Route: 048
  9. ALL OTHER THERAPEUTIC PRODUCTS [Concomitant]
  10. KLOR-CON [Concomitant]
     Route: 048
  11. DUO-MEDIHALER [Concomitant]
     Route: 065
  12. ADVAIR DISKUS 100/50 [Concomitant]
     Dosage: 500/50 INHALATION
     Route: 065
  13. ASTELIN [Concomitant]
     Route: 065
  14. FLUVASTATIN [Concomitant]
     Route: 048
  15. SINGULAIR [Concomitant]
     Route: 048
  16. MAXAIR [Concomitant]
     Route: 055
  17. XOLAIR [Concomitant]
     Dosage: EVERY TWO WEEKS
     Route: 055
  18. MAALOX [Concomitant]
  19. OXYGEN [Concomitant]
     Dosage: 3 LITERS UP TO 3.5 LITERS IF NEEDED
     Route: 065

REACTIONS (13)
  - ANXIETY [None]
  - CHEST DISCOMFORT [None]
  - CHILLS [None]
  - COLD SWEAT [None]
  - DEPRESSION [None]
  - DIZZINESS [None]
  - DYSPNOEA [None]
  - HEART RATE IRREGULAR [None]
  - HYPERHIDROSIS [None]
  - INFLUENZA LIKE ILLNESS [None]
  - NAUSEA [None]
  - NIGHTMARE [None]
  - SUICIDAL IDEATION [None]
